FAERS Safety Report 5101898-4 (Version None)
Quarter: 2006Q3

REPORT INFORMATION
  Report Type: 
  Country: None (occurrence: None)
  Receive Date: 20060907
  Receipt Date: 20060821
  Transmission Date: 20061208
  Serious: No
  Sender: FDA-Public Use
  Company Number: US200608001497

PATIENT
  Age: 60 Year
  Sex: Male

DRUGS (3)
  1. HUMALOG MIX 75/25 [Suspect]
     Indication: DIABETES MELLITUS
     Dates: start: 19880101
  2. CIALIS [Concomitant]
  3. HUMALOG MIX  PEN (HUMALOG MIX PEN) PEN, DISPOSABLE [Concomitant]

REACTIONS (1)
  - VISUAL ACUITY REDUCED [None]
